FAERS Safety Report 23574034 (Version 3)
Quarter: 2024Q3

REPORT INFORMATION
  Report Type: Spontaneous
  Country: US (occurrence: None)
  Receive Date: 20240228
  Receipt Date: 20240910
  Transmission Date: 20241017
  Serious: Yes (Hospitalization, Other)
  Sender: ASTRAZENECA
  Company Number: 2024A043031

PATIENT
  Age: 56 Year
  Sex: Female

DRUGS (15)
  1. SEROQUEL [Suspect]
     Active Substance: QUETIAPINE FUMARATE
     Indication: Schizophrenia
     Dosage: 600.0MG UNKNOWN
     Route: 048
     Dates: start: 20150504
  2. SEROQUEL [Suspect]
     Active Substance: QUETIAPINE FUMARATE
     Indication: Psychotic disorder
     Dosage: 600.0MG UNKNOWN
     Route: 048
     Dates: start: 20150504
  3. SEROQUEL [Suspect]
     Active Substance: QUETIAPINE FUMARATE
     Indication: Insomnia
     Dosage: 600.0MG UNKNOWN
     Route: 048
     Dates: start: 20150504
  4. SEROQUEL [Suspect]
     Active Substance: QUETIAPINE FUMARATE
     Indication: Schizophrenia
     Dosage: 600.0MG UNKNOWN
     Route: 048
     Dates: start: 20141118, end: 20150504
  5. SEROQUEL [Suspect]
     Active Substance: QUETIAPINE FUMARATE
     Indication: Psychotic disorder
     Dosage: 600.0MG UNKNOWN
     Route: 048
     Dates: start: 20141118, end: 20150504
  6. SEROQUEL [Suspect]
     Active Substance: QUETIAPINE FUMARATE
     Indication: Insomnia
     Dosage: 600.0MG UNKNOWN
     Route: 048
     Dates: start: 20141118, end: 20150504
  7. SEROQUEL [Suspect]
     Active Substance: QUETIAPINE FUMARATE
     Indication: Schizophrenia
     Dosage: 25.0MG UNKNOWN
     Route: 048
  8. SEROQUEL [Suspect]
     Active Substance: QUETIAPINE FUMARATE
     Indication: Psychotic disorder
     Dosage: 25.0MG UNKNOWN
     Route: 048
  9. SEROQUEL [Suspect]
     Active Substance: QUETIAPINE FUMARATE
     Indication: Insomnia
     Dosage: 25.0MG UNKNOWN
     Route: 048
  10. SEROQUEL [Suspect]
     Active Substance: QUETIAPINE FUMARATE
     Indication: Schizophrenia
     Dosage: 600.0MG UNKNOWN
     Route: 048
  11. SEROQUEL [Suspect]
     Active Substance: QUETIAPINE FUMARATE
     Indication: Psychotic disorder
     Dosage: 600.0MG UNKNOWN
     Route: 048
  12. SEROQUEL [Suspect]
     Active Substance: QUETIAPINE FUMARATE
     Indication: Insomnia
     Dosage: 600.0MG UNKNOWN
     Route: 048
  13. SEROQUEL [Suspect]
     Active Substance: QUETIAPINE FUMARATE
     Indication: Schizophrenia
     Dosage: 400.0MG UNKNOWN
     Route: 048
  14. SEROQUEL [Suspect]
     Active Substance: QUETIAPINE FUMARATE
     Indication: Psychotic disorder
     Dosage: 400.0MG UNKNOWN
     Route: 048
  15. SEROQUEL [Suspect]
     Active Substance: QUETIAPINE FUMARATE
     Indication: Insomnia
     Dosage: 400.0MG UNKNOWN
     Route: 048

REACTIONS (5)
  - Amnesia [Unknown]
  - Hypersensitivity [Unknown]
  - Stress [Unknown]
  - Confusional state [Unknown]
  - Paranoia [Unknown]

NARRATIVE: CASE EVENT DATE: 20150410
